FAERS Safety Report 9057608 (Version 2)
Quarter: 2013Q1

REPORT INFORMATION
  Report Type: Spontaneous
  Country: LB (occurrence: LB)
  Receive Date: 20130204
  Receipt Date: 20130304
  Transmission Date: 20140127
  Serious: Yes (Hospitalization, Other)
  Sender: FDA-Public Use
  Company Number: LB-PFIZER INC-2013016570

PATIENT
  Age: 38 Year
  Sex: Female

DRUGS (1)
  1. CELEBREX [Suspect]
     Indication: TEMPOROMANDIBULAR JOINT SYNDROME
     Dosage: UNK
     Dates: start: 20130104

REACTIONS (3)
  - Abdominal pain [Recovered/Resolved]
  - Musculoskeletal stiffness [Recovered/Resolved]
  - Hypoaesthesia [Recovered/Resolved]
